FAERS Safety Report 13274636 (Version 1)
Quarter: 2017Q1

REPORT INFORMATION
  Report Type: Spontaneous
  Country: US (occurrence: US)
  Receive Date: 20170227
  Receipt Date: 20170227
  Transmission Date: 20170428
  Serious: Yes (Other)
  Sender: FDA-Public Use
  Company Number: US-TEVA-743146USA

PATIENT
  Age: 31 Year
  Sex: Female

DRUGS (1)
  1. HALOPERIDOL. [Suspect]
     Active Substance: HALOPERIDOL
     Indication: BIPOLAR DISORDER
     Route: 065

REACTIONS (2)
  - Dystonia [Recovering/Resolving]
  - Kyphosis [Recovering/Resolving]
